FAERS Safety Report 11327923 (Version 4)
Quarter: 2016Q2

REPORT INFORMATION
  Report Type: Other
  Country: CA (occurrence: CA)
  Receive Date: 20150731
  Receipt Date: 20160525
  Transmission Date: 20160815
  Serious: Yes (Other)
  Sender: FDA-Public Use
  Company Number: CA-APOTEX-2015AP010806

PATIENT

DRUGS (1)
  1. APO-LEVOCARB [Suspect]
     Active Substance: CARBIDOPA\LEVODOPA
     Indication: DYSTONIA
     Dosage: 0.5 DF, TID
     Route: 048

REACTIONS (9)
  - Motor dysfunction [Unknown]
  - Gait disturbance [Unknown]
  - Affect lability [Unknown]
  - Balance disorder [Unknown]
  - Therapeutic response decreased [Unknown]
  - Injury [Unknown]
  - Product quality issue [Unknown]
  - Sensation of foreign body [Unknown]
  - Pain [Unknown]
